FAERS Safety Report 8549863-9 (Version None)
Quarter: 2012Q3

REPORT INFORMATION
  Report Type: 
  Country: None (occurrence: None)
  Receive Date: 20120730
  Receipt Date: 20110908
  Transmission Date: 20120928
  Serious: No
  Sender: FDA-Public Use
  Company Number: US-GLAXOSMITHKLINE-A0943904A

PATIENT
  Age: 55 Year
  Sex: Male

DRUGS (2)
  1. IMITREX [Suspect]
     Indication: MIGRAINE
     Route: 048
     Dates: start: 20010101
  2. NONE [Concomitant]

REACTIONS (2)
  - CHEST DISCOMFORT [None]
  - ARTHRALGIA [None]
